FAERS Safety Report 25459649 (Version 1)
Quarter: 2025Q2

REPORT INFORMATION
  Report Type: Spontaneous
  Country: US (occurrence: US)
  Receive Date: 20250620
  Receipt Date: 20250620
  Transmission Date: 20250717
  Serious: No
  Sender: SUNOVION
  Company Number: US-SMPA-2025SPA006747AA

PATIENT

DRUGS (1)
  1. ORGOVYX [Suspect]
     Active Substance: RELUGOLIX
     Indication: Prostate cancer
     Dosage: 120 MG, QD..DAILY AROUND THE SAME TIME EACH DAY
     Route: 048

REACTIONS (3)
  - Hot flush [Unknown]
  - Insomnia [Unknown]
  - Product dose omission issue [Unknown]
